FAERS Safety Report 5619302-6 (Version None)
Quarter: 2008Q1

REPORT INFORMATION
  Report Type: 
  Country: None (occurrence: None)
  Receive Date: 20080206
  Receipt Date: 20080123
  Transmission Date: 20080703
  Serious: Yes (Death, Hospitalization)
  Sender: FDA-Public Use
  Company Number: 2008SP000154

PATIENT
  Age: 63 Year
  Sex: Male

DRUGS (10)
  1. BROVANA [Suspect]
     Indication: CHRONIC OBSTRUCTIVE PULMONARY DISEASE
     Dosage: 15 UG/2ML;BID;INHALATION
     Route: 055
     Dates: start: 20070901
  2. ALBUTEROL [Concomitant]
  3. ATROVENT [Concomitant]
  4. PRENISONE [Concomitant]
  5. FUROSEMIDE [Concomitant]
  6. POTASSIUM CHLORIDE [Concomitant]
  7. ASPIRIN [Concomitant]
  8. HYDROCODONE BITARTRATE [Concomitant]
  9. PULMICORT [Concomitant]
  10. OTHER COUGH SUPPRESSANTS [Concomitant]

REACTIONS (3)
  - CHRONIC OBSTRUCTIVE PULMONARY DISEASE [None]
  - CONDITION AGGRAVATED [None]
  - MALAISE [None]
